FAERS Safety Report 9116637 (Version 1)
Quarter: 2013Q1

REPORT INFORMATION
  Report Type: Spontaneous
  Country: US (occurrence: US)
  Receive Date: 20130225
  Receipt Date: 20130225
  Transmission Date: 20140127
  Serious: Yes (Other)
  Sender: FDA-Public Use
  Company Number: PHEH2013US004411

PATIENT
  Sex: Male
  Weight: 87.75 kg

DRUGS (12)
  1. GILENYA [Suspect]
     Dosage: 0.5 MG, QD
     Route: 048
  2. NEURONTIN [Concomitant]
     Dosage: 800 MG, UNK
     Route: 048
  3. VIIBRYD [Concomitant]
     Dosage: 10 MG, UNK
  4. REMERON [Concomitant]
     Dosage: 15 MG, UNK
  5. LORTAB [Concomitant]
     Dosage: 5 MG, UNK
  6. LIPITOR [Concomitant]
     Dosage: 80 MG, UNK
  7. TRIAMTERENE/HCTZ [Concomitant]
     Dosage: 25-50 MG, UNK
  8. NORVASC [Concomitant]
     Dosage: 10 MG, UNK
  9. CARDURA [Concomitant]
     Dosage: 1 MG, UNK
  10. VIT D [Concomitant]
     Dosage: 1000 U, UNK
  11. MULTI-VIT [Concomitant]
  12. VITAMIN D3 [Concomitant]
     Dosage: 1000 U, UNK

REACTIONS (3)
  - Neuropathy peripheral [Unknown]
  - Muscle spasms [Unknown]
  - Vision blurred [Unknown]
